FAERS Safety Report 13334622 (Version 4)
Quarter: 2017Q2

REPORT INFORMATION
  Report Type: Spontaneous
  Country: US (occurrence: US)
  Receive Date: 20170314
  Receipt Date: 20170421
  Transmission Date: 20170830
  Serious: Yes (Hospitalization)
  Sender: FDA-Public Use
  Company Number: US-ALEXION-A201702293

PATIENT
  Age: 57 Year
  Sex: Male
  Weight: 65 kg

DRUGS (10)
  1. TYLENOL WITH CODEINE [Concomitant]
     Active Substance: ACETAMINOPHEN\CODEINE PHOSPHATE
     Indication: PRODUCT USED FOR UNKNOWN INDICATION
     Dosage: 1 DF, Q4H (AS NEEDED) 30-300MG
     Route: 048
  2. COREG [Concomitant]
     Active Substance: CARVEDILOL
     Indication: PRODUCT USED FOR UNKNOWN INDICATION
     Dosage: 12.5 MG, BID
     Route: 048
  3. CIPRO [Concomitant]
     Active Substance: CIPROFLOXACIN HYDROCHLORIDE
     Indication: PRODUCT USED FOR UNKNOWN INDICATION
     Dosage: 500 MG, BID (FOR 14 DAYS)
     Route: 065
  4. SOLIRIS [Suspect]
     Active Substance: ECULIZUMAB
     Dosage: 1200 MG, Q2W
     Route: 042
     Dates: start: 20170407
  5. LIBRIUM [Concomitant]
     Active Substance: CHLORDIAZEPOXIDE HYDROCHLORIDE
     Indication: ANXIETY
     Dosage: 10 MG, TID AS NEEDED
     Route: 048
  6. KEPPRA [Concomitant]
     Active Substance: LEVETIRACETAM
     Indication: PRODUCT USED FOR UNKNOWN INDICATION
     Dosage: 500 MG, BID
     Route: 048
  7. SOLIRIS [Suspect]
     Active Substance: ECULIZUMAB
     Indication: HAEMOLYTIC URAEMIC SYNDROME
     Dosage: 900 MG, QW
     Route: 042
     Dates: start: 20170228
  8. CIPRO [Concomitant]
     Active Substance: CIPROFLOXACIN HYDROCHLORIDE
     Indication: PRODUCT USED FOR UNKNOWN INDICATION
     Dosage: 500 MG, QHS
     Route: 048
  9. PEPCID [Concomitant]
     Active Substance: FAMOTIDINE
     Indication: PRODUCT USED FOR UNKNOWN INDICATION
     Dosage: 20 MG, QD
     Route: 048
  10. MUCINEX [Concomitant]
     Active Substance: GUAIFENESIN
     Indication: PRODUCT USED FOR UNKNOWN INDICATION
     Dosage: 600 MG, BID
     Route: 048

REACTIONS (32)
  - Blood bilirubin abnormal [Recovered/Resolved]
  - Blood urea abnormal [Unknown]
  - Blood phosphorus abnormal [Unknown]
  - Haematocrit abnormal [Unknown]
  - Blood iron decreased [Unknown]
  - Confusional state [Unknown]
  - Weight increased [Unknown]
  - Fistula [Unknown]
  - Fatigue [Unknown]
  - Blood calcium abnormal [Recovered/Resolved]
  - Serum ferritin increased [Unknown]
  - Restlessness [Unknown]
  - Paraesthesia [Unknown]
  - Dyspnoea [Unknown]
  - Platelet count abnormal [Unknown]
  - Haptoglobin abnormal [Recovered/Resolved]
  - White blood cell count abnormal [Unknown]
  - Pyrexia [Recovered/Resolved]
  - Malaise [Unknown]
  - Thirst [Unknown]
  - Hypoaesthesia [Unknown]
  - Blood creatinine abnormal [Unknown]
  - Blood albumin abnormal [Recovered/Resolved]
  - Blood glucose abnormal [Unknown]
  - Blood chloride abnormal [Unknown]
  - Haemoglobin abnormal [Unknown]
  - Iron binding capacity total decreased [Unknown]
  - Blood urine present [Not Recovered/Not Resolved]
  - Blood lactate dehydrogenase increased [Unknown]
  - Alanine aminotransferase abnormal [Recovered/Resolved]
  - Blood sodium abnormal [Unknown]
  - Protein urine present [Not Recovered/Not Resolved]

NARRATIVE: CASE EVENT DATE: 20170228
